FAERS Safety Report 5644068-3 (Version None)
Quarter: 2008Q1

REPORT INFORMATION
  Report Type: 
  Country: None (occurrence: None)
  Receive Date: 20080226
  Receipt Date: 20080215
  Transmission Date: 20080703
  Serious: Yes (Hospitalization)
  Sender: FDA-Public Use
  Company Number: B0509447A

PATIENT
  Age: 68 Year
  Sex: Male

DRUGS (8)
  1. LEXIVA [Suspect]
     Indication: HIV INFECTION
     Dosage: 700 MG TWICE PER DAY ORAL
     Route: 048
     Dates: end: 20071228
  2. GLIMEPIRIDE [Suspect]
     Indication: TYPE 2 DIABETES MELLITUS
     Dosage: 6 MG PER DAY ORAL
     Route: 048
     Dates: end: 20071228
  3. METFORMIN HCL [Suspect]
     Indication: TYPE 2 DIABETES MELLITUS
     Dosage: 1000 MG TWICE PER DAY ORAL
     Route: 048
     Dates: end: 20071228
  4. EZETIMIBE TABLET (EZETIMIBE) [Suspect]
     Indication: DRUG USE FOR UNKNOWN INDICATION
     Dosage: 10 MG PER DAY ORAL
     Route: 048
     Dates: end: 20071228
  5. PRAVASTATIN SODIUM [Suspect]
     Indication: DRUG USE FOR UNKNOWN INDICATION
     Dosage: 40 MG PER DAY ORAL
     Route: 048
     Dates: end: 20071228
  6. DIDANOSINE [Suspect]
     Indication: HIV INFECTION
     Dosage: 250 MG PER DAY ORAL
     Route: 048
     Dates: end: 20071228
  7. TENOFOVIR DISOPROXIL FUMA TABLET (TENOFOVIR DISOPROXIL FUMA) [Suspect]
     Indication: HIV INFECTION
     Dosage: 245 MG PER DAY ORAL
     Route: 048
     Dates: end: 20071228
  8. RITONAVIR CAPSULE (RITONAVIR) [Suspect]
     Indication: HIV INFECTION
     Dosage: 100 MG TWICE PER DAY ORAL
     Route: 048
     Dates: end: 20071228

REACTIONS (8)
  - ALANINE AMINOTRANSFERASE INCREASED [None]
  - AMMONIA INCREASED [None]
  - ASPARTATE AMINOTRANSFERASE INCREASED [None]
  - BLOOD ALKALINE PHOSPHATASE INCREASED [None]
  - CARBON DIOXIDE DECREASED [None]
  - GAMMA-GLUTAMYLTRANSFERASE INCREASED [None]
  - HEPATIC ENCEPHALOPATHY [None]
  - LACTIC ACIDOSIS [None]
